FAERS Safety Report 4547309-9 (Version None)
Quarter: 2005Q1

REPORT INFORMATION
  Report Type: 
  Country: None (occurrence: None)
  Receive Date: 20050105
  Receipt Date: 20041217
  Transmission Date: 20050727
  Serious: No
  Sender: FDA-Public Use
  Company Number: USA041286535

PATIENT
  Sex: Male

DRUGS (1)
  1. STRATTERA [Suspect]
     Dosage: 60 MG/1 DAY
     Dates: start: 20030101

REACTIONS (4)
  - DECREASED APPETITE [None]
  - PALLOR [None]
  - PRURITUS [None]
  - WEIGHT DECREASED [None]
